FAERS Safety Report 5697871-8 (Version None)
Quarter: 2008Q2

REPORT INFORMATION
  Report Type: 
  Country: None (occurrence: None)
  Receive Date: 20080408
  Receipt Date: 20080402
  Transmission Date: 20081010
  Serious: Yes (Congenital Anomaly)
  Sender: FDA-Public Use
  Company Number: US-BRISTOL-MYERS SQUIBB COMPANY-14136063

PATIENT

DRUGS (3)
  1. STAVUDINE [Suspect]
     Route: 064
  2. NEVIRAPINE [Suspect]
     Route: 064
  3. LAMIVUDINE [Suspect]
     Route: 064

REACTIONS (4)
  - DANDY-WALKER SYNDROME [None]
  - DRUG EXPOSURE DURING PREGNANCY [None]
  - HYDROCEPHALUS [None]
  - PREGNANCY [None]
